FAERS Safety Report 4536602-1 (Version None)
Quarter: 2004Q4

REPORT INFORMATION
  Report Type: 
  Country: None (occurrence: None)
  Receive Date: 20041223
  Receipt Date: 20041215
  Transmission Date: 20050328
  Serious: Yes (Other)
  Sender: FDA-Public Use
  Company Number: JP-BRISTOL-MYERS SQUIBB COMPANY-12804191

PATIENT
  Age: 1 Month
  Sex: Male

DRUGS (3)
  1. CYCLOPHOSPHAMIDE [Suspect]
     Indication: ACUTE LYMPHOCYTIC LEUKAEMIA
  2. VP-16 [Suspect]
     Indication: ACUTE LYMPHOCYTIC LEUKAEMIA
  3. RADIATION THERAPY [Suspect]
     Indication: ACUTE LYMPHOCYTIC LEUKAEMIA

REACTIONS (3)
  - HYPERKINESIA [None]
  - RETINITIS [None]
  - VENOOCCLUSIVE DISEASE [None]
